FAERS Safety Report 5108274-9 (Version None)
Quarter: 2006Q3

REPORT INFORMATION
  Report Type: 
  Country: None (occurrence: None)
  Receive Date: 20060919
  Receipt Date: 20051130
  Transmission Date: 20061208
  Serious: No
  Sender: FDA-Public Use
  Company Number: US-BRISTOL-MYERS SQUIBB COMPANY-13198544

PATIENT
  Age: 75 Year
  Sex: Male
  Weight: 100 kg

DRUGS (13)
  1. MEGESTROL ACETATE [Suspect]
     Indication: HOT FLUSH
     Route: 048
  2. PANTOPRAZOLE SODIUM [Concomitant]
  3. ATENOLOL [Concomitant]
  4. NITROGLYCERIN [Concomitant]
  5. ASPIRIN [Concomitant]
  6. LOVASTATIN [Concomitant]
  7. TERAZOSIN HCL [Concomitant]
  8. DOCUSATE [Concomitant]
  9. LISINOPRIL [Concomitant]
  10. DILTIAZEM HCL [Concomitant]
  11. TRAZODONE HCL [Concomitant]
  12. TRIAMTERENE [Concomitant]
  13. GLYBURIDE [Concomitant]

REACTIONS (2)
  - DRY MOUTH [None]
  - DYSGEUSIA [None]
